FAERS Safety Report 8128524-4 (Version None)
Quarter: 2012Q1

REPORT INFORMATION
  Report Type: 
  Country: None (occurrence: None)
  Receive Date: 20120210
  Receipt Date: 20111207
  Transmission Date: 20120608
  Serious: No
  Sender: FDA-Public Use
  Company Number: US-BRISTOL-MYERS SQUIBB COMPANY-16261166

PATIENT
  Sex: Female

DRUGS (3)
  1. ORENCIA [Suspect]
     Indication: RHEUMATOID ARTHRITIS
     Dosage: NO. OF INF:02.
     Dates: start: 20111001
  2. MINOCYCLINE HCL [Concomitant]
  3. PLAQUENIL [Concomitant]

REACTIONS (1)
  - DYSPNOEA [None]
